FAERS Safety Report 24623114 (Version 3)
Quarter: 2025Q1

REPORT INFORMATION
  Report Type: Spontaneous
  Country: DE (occurrence: DE)
  Receive Date: 20241115
  Receipt Date: 20250127
  Transmission Date: 20250409
  Serious: Yes (Hospitalization, Other)
  Sender: AUROBINDO
  Company Number: DE-BRISTOL-MYERS SQUIBB COMPANY-2024-160406

PATIENT
  Age: 74 Year
  Sex: Male
  Weight: 83 kg

DRUGS (7)
  1. OXALIPLATIN [Suspect]
     Active Substance: OXALIPLATIN
     Indication: Gastric cancer
     Route: 042
     Dates: start: 20220926
  2. OXALIPLATIN [Suspect]
     Active Substance: OXALIPLATIN
     Route: 042
     Dates: start: 20230323
  3. FLUOROURACIL [Suspect]
     Active Substance: FLUOROURACIL
     Indication: Gastric cancer
     Route: 065
     Dates: start: 20220926, end: 20221130
  4. FLUOROURACIL [Suspect]
     Active Substance: FLUOROURACIL
     Route: 065
     Dates: start: 20240415
  5. OPDIVO [Suspect]
     Active Substance: NIVOLUMAB
     Indication: Gastric cancer
     Route: 042
     Dates: start: 20220926
  6. TRIFLURIDINE [Suspect]
     Active Substance: TRIFLURIDINE
     Indication: Gastric cancer
     Route: 048
     Dates: start: 20240513, end: 20240708
  7. ONDANSETRON [Concomitant]
     Active Substance: ONDANSETRON
     Indication: Prophylaxis
     Dosage: 4 MILLIGRAM, ONCE A DAY
     Route: 048
     Dates: start: 20230612

REACTIONS (5)
  - Nausea [Recovered/Resolved]
  - Metastases to liver [Unknown]
  - Decreased appetite [Unknown]
  - Weight decreased [Unknown]
  - Conjunctivitis [Recovered/Resolved]

NARRATIVE: CASE EVENT DATE: 20230614
